FAERS Safety Report 17056681 (Version 2)
Quarter: 2019Q4

REPORT INFORMATION
  Report Type: Spontaneous
  Country: US (occurrence: US)
  Receive Date: 20191121
  Receipt Date: 20191217
  Transmission Date: 20200122
  Serious: No
  Sender: FDA-Public Use
  Company Number: US-APOTEX-2019AP024686

PATIENT
  Sex: Male

DRUGS (2)
  1. FLUTICASONE. [Suspect]
     Active Substance: FLUTICASONE
     Indication: RHINORRHOEA
     Dosage: QD TWO SPRAYS IN EACH NOSTRIL ONCE A DAY
     Route: 045
     Dates: start: 20191101, end: 20191107
  2. FLUTICASONE. [Suspect]
     Active Substance: FLUTICASONE
     Indication: ALLERGIC RESPIRATORY SYMPTOM

REACTIONS (2)
  - Lacrimation increased [Recovered/Resolved]
  - Drug ineffective [Unknown]
